FAERS Safety Report 13231449 (Version 2)
Quarter: 2017Q1

REPORT INFORMATION
  Report Type: Report from Study
  Country: CA (occurrence: CA)
  Receive Date: 20170214
  Receipt Date: 20170216
  Transmission Date: 20170428
  Serious: Yes (Other)
  Sender: FDA-Public Use
  Company Number: CA-JNJFOC-20161105838

PATIENT
  Age: 72 Year
  Sex: Male

DRUGS (3)
  1. IMBRUVICA [Suspect]
     Active Substance: IBRUTINIB
     Indication: WALDENSTROM^S MACROGLOBULINAEMIA
     Route: 048
     Dates: start: 20161024
  2. GRAVOL [Concomitant]
     Active Substance: DIMENHYDRINATE
     Indication: GASTROOESOPHAGEAL REFLUX DISEASE
     Route: 065
  3. VITALUX [Concomitant]
     Active Substance: MINERALS\VITAMINS
     Indication: MACULAR DEGENERATION
     Route: 065

REACTIONS (11)
  - Constipation [Recovered/Resolved]
  - Respiration abnormal [Recovering/Resolving]
  - Feeling abnormal [Not Recovered/Not Resolved]
  - Neuropathy peripheral [Not Recovered/Not Resolved]
  - Mood altered [Recovering/Resolving]
  - Gastrooesophageal reflux disease [Recovering/Resolving]
  - Memory impairment [Not Recovered/Not Resolved]
  - Haematochezia [Not Recovered/Not Resolved]
  - Upper respiratory tract congestion [Recovering/Resolving]
  - Nausea [Recovered/Resolved]
  - Incorrect product storage [Unknown]

NARRATIVE: CASE EVENT DATE: 20170212
